FAERS Safety Report 18329750 (Version 6)
Quarter: 2022Q1

REPORT INFORMATION
  Report Type: Spontaneous
  Country: US (occurrence: US)
  Receive Date: 20200930
  Receipt Date: 20220203
  Transmission Date: 20220423
  Serious: Yes (Hospitalization, Other)
  Sender: FDA-Public Use
  Company Number: US-PFIZER INC-2020376604

PATIENT
  Age: 55 Year
  Sex: Female
  Weight: 90.72 kg

DRUGS (1)
  1. CHANTIX [Suspect]
     Active Substance: VARENICLINE TARTRATE
     Indication: Smoking cessation therapy
     Dosage: 1 MG, 2X/DAY
     Route: 048

REACTIONS (16)
  - Illness [Unknown]
  - Impaired gastric emptying [Unknown]
  - Condition aggravated [Unknown]
  - Pneumonia [Unknown]
  - Therapeutic product effect incomplete [Not Recovered/Not Resolved]
  - Eating disorder [Unknown]
  - Headache [Unknown]
  - Migraine [Unknown]
  - Ear pain [Unknown]
  - Ear infection [Unknown]
  - Dyspnoea [Unknown]
  - Gait inability [Unknown]
  - Weight increased [Unknown]
  - Cough [Unknown]
  - Chronic obstructive pulmonary disease [Unknown]
  - Abnormal dreams [Unknown]

NARRATIVE: CASE EVENT DATE: 20150601
